FAERS Safety Report 21082404 (Version 4)
Quarter: 2023Q1

REPORT INFORMATION
  Report Type: Report from Study
  Country: FR (occurrence: FR)
  Receive Date: 20220714
  Receipt Date: 20230216
  Transmission Date: 20230417
  Serious: Yes (Other)
  Sender: FDA-Public Use
  Company Number: FR-JNJFOC-20220710352

PATIENT
  Age: 78 Year
  Sex: Male
  Weight: 97 kg

DRUGS (4)
  1. APALUTAMIDE [Suspect]
     Active Substance: APALUTAMIDE
     Indication: Prostate cancer
     Dosage: 01-APR-2022: CYCLE 1 DAY 1?CUMULATIVE DOSE 18,720 MG
     Route: 048
     Dates: start: 20220401, end: 20220630
  2. APALUTAMIDE [Suspect]
     Active Substance: APALUTAMIDE
     Dosage: MOST RECENT DOSE RECEIVED ON 22-JUL-2022
     Route: 048
     Dates: start: 20220711
  3. RADIATION THERAPY [Suspect]
     Active Substance: RADIATION THERAPY
     Indication: Prostate cancer
     Dosage: UNIT: GRAY?DOSAGE: PROSTATE 2 IU EVERY DAY; PELVIS 1.7 IU EVERY DAY, BOOST 2.1 IU EVERY DAY?INTENSIT
     Dates: start: 20220428, end: 20220617
  4. GONADORELIN [Concomitant]
     Active Substance: GONADORELIN
     Indication: Prostate cancer
     Dosage: 01-APR-2022: CYCLE 1 DAY 1, DOSE: 11.25 MG EVERY CYCLE, CUMULATIVE DOSE: 22.5 MG.
     Route: 058
     Dates: start: 20220401, end: 20220703

REACTIONS (2)
  - Clostridium difficile infection [Recovered/Resolved]
  - Rash [Not Recovered/Not Resolved]

NARRATIVE: CASE EVENT DATE: 20220619
